FAERS Safety Report 5158349-3 (Version None)
Quarter: 2006Q4

REPORT INFORMATION
  Report Type: 
  Country: None (occurrence: None)
  Receive Date: 20061116
  Receipt Date: 20061108
  Transmission Date: 20070319
  Serious: Yes (Other)
  Sender: FDA-Public Use
  Company Number: 30420

PATIENT
  Age: 82 Year
  Sex: Female

DRUGS (4)
  1. FLECAINIDE ACETATE [Suspect]
     Dosage: UNSPECIFIED ORAL
     Route: 048
     Dates: start: 20040101
  2. PROPRANOLOL [Suspect]
     Dosage: ORAL
     Route: 048
  3. IRBESARTAN [Suspect]
     Dosage: ORAL
     Route: 048
  4. LEVOTHYROXINE SODIUM [Suspect]
     Dosage: ORAL
     Route: 048

REACTIONS (1)
  - MYCOSIS FUNGOIDES [None]
